FAERS Safety Report 9634401 (Version 1)
Quarter: 2013Q4

REPORT INFORMATION
  Report Type: Spontaneous
  Country: US (occurrence: US)
  Receive Date: 20131021
  Receipt Date: 20131021
  Transmission Date: 20140711
  Serious: No
  Sender: FDA-Public Use
  Company Number: US-JNJFOC-20131004343

PATIENT
  Sex: Female
  Weight: 77.11 kg

DRUGS (1)
  1. INVEGA SUSTENNA [Suspect]
     Indication: CRANIOCEREBRAL INJURY
     Route: 030
     Dates: start: 2011

REACTIONS (3)
  - Haemorrhage [Not Recovered/Not Resolved]
  - Pain [Not Recovered/Not Resolved]
  - Off label use [Unknown]
